FAERS Safety Report 5381707-9 (Version None)
Quarter: 2007Q2

REPORT INFORMATION
  Report Type: 
  Country: None (occurrence: None)
  Receive Date: 20070629
  Receipt Date: 20070327
  Transmission Date: 20071010
  Serious: Yes (Other)
  Sender: FDA-Public Use
  Company Number: US200703005858

PATIENT
  Sex: Female

DRUGS (2)
  1. HUMALOG [Suspect]
     Indication: DIABETES MELLITUS
     Dates: start: 20050101
  2. LANTUS [Concomitant]

REACTIONS (4)
  - CORONARY ARTERY BYPASS [None]
  - FRACTURE NONUNION [None]
  - IMPLANTABLE DEFIBRILLATOR INSERTION [None]
  - LOWER LIMB FRACTURE [None]
